FAERS Safety Report 5847482-6 (Version None)
Quarter: 2008Q3

REPORT INFORMATION
  Report Type: 
  Country: None (occurrence: None)
  Receive Date: 20080814
  Receipt Date: 20080801
  Transmission Date: 20090109
  Serious: Yes (Hospitalization)
  Sender: FDA-Public Use
  Company Number: TRP_05846_2008

PATIENT
  Sex: Female

DRUGS (8)
  1. RIBASPHERE [Suspect]
     Indication: HEPATITIS C VIRUS TEST
     Dosage: 1200 MG ORAL, 600 MG ORAL
     Route: 048
     Dates: start: 20080101
  2. RIBASPHERE [Suspect]
     Indication: HEPATITIS C VIRUS TEST
     Dosage: 1200 MG ORAL, 600 MG ORAL
     Route: 048
     Dates: start: 20080328
  3. PEGASYS [Suspect]
     Indication: HEPATITIS C VIRUS TEST
     Dosage: 180 ?G 1X /WEEK SUBCUTANEOUS
     Route: 058
     Dates: start: 20080328
  4. WELLBUTRIN [Concomitant]
  5. SEROQUEL [Concomitant]
  6. CONCERTA [Concomitant]
  7. XANAX [Concomitant]
  8. AMBIEN [Concomitant]

REACTIONS (24)
  - ANOREXIA [None]
  - ANXIETY [None]
  - BIPOLAR DISORDER [None]
  - CANDIDIASIS [None]
  - CRYING [None]
  - DEPRESSION [None]
  - DYSPNOEA [None]
  - FALL [None]
  - FEAR [None]
  - FEELING ABNORMAL [None]
  - GAIT DISTURBANCE [None]
  - INSOMNIA [None]
  - MANIA [None]
  - MENTAL DISORDER [None]
  - MUSCLE TWITCHING [None]
  - NAIL DISORDER [None]
  - NAUSEA [None]
  - PNEUMONIA [None]
  - PYREXIA [None]
  - RED BLOOD CELL COUNT DECREASED [None]
  - SWELLING [None]
  - VOMITING [None]
  - WEIGHT INCREASED [None]
  - WHITE BLOOD CELL COUNT DECREASED [None]
